FAERS Safety Report 14977026 (Version 3)
Quarter: 2018Q4

REPORT INFORMATION
  Report Type: Spontaneous
  Country: US (occurrence: US)
  Receive Date: 20180605
  Receipt Date: 20181210
  Transmission Date: 20190204
  Serious: No
  Sender: FDA-Public Use
  Company Number: US-BRISTOL-MYERS SQUIBB COMPANY-BMS-2018-051896

PATIENT
  Sex: Female
  Weight: 82.86 kg

DRUGS (1)
  1. ORENCIA [Suspect]
     Active Substance: ABATACEPT
     Indication: RHEUMATOID ARTHRITIS
     Dosage: 125 MG, QWK
     Route: 058
     Dates: start: 201804

REACTIONS (5)
  - Headache [Unknown]
  - Back pain [Unknown]
  - Influenza [Unknown]
  - Injection site reaction [Unknown]
  - Drug ineffective [Unknown]
